FAERS Safety Report 16633615 (Version 2)
Quarter: 2019Q3

REPORT INFORMATION
  Report Type: Spontaneous
  Country: MX (occurrence: MX)
  Receive Date: 20190725
  Receipt Date: 20190812
  Transmission Date: 20191004
  Serious: Yes (Other)
  Sender: FDA-Public Use
  Company Number: PHHY2019MX133223

PATIENT
  Age: 36 Year
  Sex: Male
  Weight: 76 kg

DRUGS (1)
  1. SECUKINUMAB. [Suspect]
     Active Substance: SECUKINUMAB
     Indication: PSORIASIS
     Dosage: 300 MG, QW
     Route: 058
     Dates: start: 20190226, end: 20190611

REACTIONS (8)
  - Off label use [Unknown]
  - Psoriasis [Unknown]
  - Fungal infection [Unknown]
  - Pruritus generalised [Unknown]
  - Product prescribing error [Unknown]
  - Skin exfoliation [Unknown]
  - Tinea pedis [Unknown]
  - Tinea cruris [Unknown]

NARRATIVE: CASE EVENT DATE: 20190510
